FAERS Safety Report 7906679-1 (Version None)
Quarter: 2011Q4

REPORT INFORMATION
  Report Type: 
  Country: None (occurrence: None)
  Receive Date: 20111110
  Receipt Date: 20111107
  Transmission Date: 20120403
  Serious: Yes (Other)
  Sender: FDA-Public Use
  Company Number: CA-SANOFI-AVENTIS-2011SA073406

PATIENT
  Age: 86 Year
  Sex: Female

DRUGS (15)
  1. ZOCOR [Concomitant]
  2. CLONAZEPAM [Concomitant]
  3. DOCUSATE SODIUM [Concomitant]
  4. FUROSEMIDE [Concomitant]
  5. VENTOLIN [Concomitant]
     Dosage: DOSE:4 PUFF(S)
     Route: 055
  6. PLAVIX [Suspect]
     Route: 048
     Dates: end: 20111024
  7. CALCIUM [Concomitant]
  8. VITAMIN D [Concomitant]
  9. APO-RANITIDINE [Concomitant]
  10. SPIRIVA [Concomitant]
     Dosage: DOSE:1 PUFF(S)
     Route: 055
  11. ASPIRIN [Concomitant]
  12. ACETAMINOPHEN AND TRAMADOL HCL [Concomitant]
     Indication: PAIN
  13. PANTOPRAZOLE [Concomitant]
  14. ADVAIR DISKUS 100/50 [Concomitant]
     Dosage: DOSE:2 PUFF(S)
     Route: 055
  15. EVISTA [Concomitant]

REACTIONS (1)
  - PNEUMONIA [None]
